FAERS Safety Report 18514040 (Version 1)
Quarter: 2020Q4

REPORT INFORMATION
  Report Type: Spontaneous
  Country: US (occurrence: US)
  Receive Date: 20201117
  Receipt Date: 20201117
  Transmission Date: 20210114
  Serious: No
  Sender: FDA-Public Use
  Company Number: US-JNJFOC-20201119325

PATIENT
  Sex: Female

DRUGS (1)
  1. ZYRTEC [Suspect]
     Active Substance: CETIRIZINE HYDROCHLORIDE
     Indication: MULTIPLE ALLERGIES
     Dosage: STARTED TAKING 10 YEARS AGO; FIRST TIME TO TAKE THIS PARTICULAR BOTTLE; DATE LAST ADMINISTERED: 08/N
     Route: 048

REACTIONS (1)
  - Somnolence [Recovered/Resolved]
